FAERS Safety Report 13754209 (Version 1)
Quarter: 2017Q3

REPORT INFORMATION
  Report Type: Spontaneous
  Country: US (occurrence: US)
  Receive Date: 20170714
  Receipt Date: 20170714
  Transmission Date: 20171127
  Serious: Yes (Hospitalization)
  Sender: FDA-Public Use
  Company Number: None

PATIENT
  Age: 64 Year
  Sex: Male

DRUGS (1)
  1. NEULASTA [Suspect]
     Active Substance: PEGFILGRASTIM
     Indication: COLON CANCER
     Route: 058
     Dates: start: 20170413

REACTIONS (3)
  - Therapy cessation [None]
  - Peripheral swelling [None]
  - Platelet count decreased [None]

NARRATIVE: CASE EVENT DATE: 20170620
